FAERS Safety Report 4809191-1 (Version None)
Quarter: 2005Q4

REPORT INFORMATION
  Report Type: 
  Country: None (occurrence: None)
  Receive Date: 20051021
  Receipt Date: 20010725
  Transmission Date: 20060501
  Serious: No
  Sender: FDA-Public Use
  Company Number: GBS010809220

PATIENT
  Sex: Male

DRUGS (3)
  1. ZYPREXA [Suspect]
     Indication: AFFECTIVE DISORDER
     Dosage: 15 MG/DAY
     Dates: start: 20000601
  2. ZYPREXA [Suspect]
     Indication: MANIA
     Dosage: 15 MG/DAY
     Dates: start: 20000601
  3. ZYPREXA [Suspect]
     Indication: SCHIZOPHRENIA
     Dosage: 15 MG/DAY
     Dates: start: 20000601

REACTIONS (1)
  - NEUTROPHIL COUNT DECREASED [None]
